FAERS Safety Report 21975233 (Version 1)
Quarter: 2023Q1

REPORT INFORMATION
  Report Type: Spontaneous
  Country: US (occurrence: None)
  Receive Date: 20230210
  Receipt Date: 20230210
  Transmission Date: 20230418
  Serious: No
  Sender: FDA-Public Use
  Company Number: 2023A011274

PATIENT

DRUGS (2)
  1. PULMICORT RESPULES [Suspect]
     Active Substance: BUDESONIDE
     Route: 055
  2. BUDESONIDE [Suspect]
     Active Substance: BUDESONIDE
     Route: 055

REACTIONS (6)
  - Off label use [Unknown]
  - Drug intolerance [Unknown]
  - Drug dose omission by device [Unknown]
  - Condition aggravated [Unknown]
  - Feeling abnormal [Unknown]
  - Dyspnoea [Unknown]
